FAERS Safety Report 12790118 (Version 2)
Quarter: 2016Q4

REPORT INFORMATION
  Report Type: Report from Study
  Country: US (occurrence: US)
  Receive Date: 20160928
  Receipt Date: 20161003
  Transmission Date: 20170207
  Serious: No
  Sender: FDA-Public Use
  Company Number: US-JNJFOC-20160924769

PATIENT
  Age: 55 Year
  Sex: Female
  Weight: 61.24 kg

DRUGS (2)
  1. INVOKANA [Suspect]
     Active Substance: CANAGLIFLOZIN
     Indication: TYPE 2 DIABETES MELLITUS
     Dosage: STARTED 2 YEARS AGO.
     Route: 048
     Dates: end: 201607
  2. INVOKAMET [Suspect]
     Active Substance: CANAGLIFLOZIN\METFORMIN HYDROCHLORIDE
     Indication: TYPE 2 DIABETES MELLITUS
     Dosage: 150/1000MG
     Route: 048

REACTIONS (2)
  - Drug ineffective [Unknown]
  - Glucose urine present [Unknown]

NARRATIVE: CASE EVENT DATE: 201607
